FAERS Safety Report 6017754-3 (Version None)
Quarter: 2008Q4

REPORT INFORMATION
  Report Type: 
  Country: None (occurrence: None)
  Receive Date: 20081223
  Receipt Date: 20081208
  Transmission Date: 20090506
  Serious: Yes (Other)
  Sender: FDA-Public Use
  Company Number: US-BIOGENIDEC-2008BI017726

PATIENT
  Age: 49 Year
  Sex: Female

DRUGS (10)
  1. TYSABRI [Suspect]
     Indication: MULTIPLE SCLEROSIS
     Route: 042
     Dates: start: 20080612, end: 20080718
  2. PROTONIX [Concomitant]
     Indication: DRUG USE FOR UNKNOWN INDICATION
  3. ZOLOFT [Concomitant]
     Indication: DRUG USE FOR UNKNOWN INDICATION
  4. SYNTHROID [Concomitant]
     Indication: DRUG USE FOR UNKNOWN INDICATION
  5. TRAZODONE [Concomitant]
     Indication: DRUG USE FOR UNKNOWN INDICATION
  6. MECLIZINE [Concomitant]
     Indication: DRUG USE FOR UNKNOWN INDICATION
  7. DILANTIN [Concomitant]
     Indication: CONVULSION
  8. FIORINAL [Concomitant]
     Indication: DRUG USE FOR UNKNOWN INDICATION
  9. DIAZEPAM [Concomitant]
     Indication: PREMEDICATION
  10. DEPAKOTE [Concomitant]
     Indication: CONVULSION

REACTIONS (6)
  - LIVER FUNCTION TEST ABNORMAL [None]
  - LYMPHADENOPATHY [None]
  - RASH [None]
  - RASH PAPULAR [None]
  - SARCOIDOSIS [None]
  - SUBCUTANEOUS ABSCESS [None]
